FAERS Safety Report 4764396-3 (Version None)
Quarter: 2005Q3

REPORT INFORMATION
  Report Type: 
  Country: None (occurrence: None)
  Receive Date: 20050906
  Receipt Date: 20050824
  Transmission Date: 20060218
  Serious: Yes (Other)
  Sender: FDA-Public Use
  Company Number: HQWYE698204AUG05

PATIENT
  Age: 78 Year
  Sex: Male

DRUGS (3)
  1. PANTOZOL (PANTOPRAZOLE, TABLET, DELAYED RELEASE) [Suspect]
     Indication: HELICOBACTER GASTRITIS
     Dosage: 40 MG 2X PER 1 DAY ORAL
     Route: 048
     Dates: start: 20050101
  2. AMOXICILLIN [Suspect]
     Indication: HELICOBACTER GASTRITIS
     Dosage: 1000 MG 2X PER 1 DAY ORAL
     Route: 048
     Dates: start: 20050101
  3. CLARITHROMYCIN [Suspect]
     Indication: HELICOBACTER GASTRITIS
     Dosage: 500 MG 2X PER 1 DAY ORAL
     Route: 048
     Dates: start: 20050101

REACTIONS (3)
  - ANGIONEUROTIC OEDEMA [None]
  - DRUG ERUPTION [None]
  - REFUSAL OF TREATMENT BY PATIENT [None]
